FAERS Safety Report 22102864 (Version 1)
Quarter: 2023Q1

REPORT INFORMATION
  Report Type: Spontaneous
  Country: CA (occurrence: CA)
  Receive Date: 20230316
  Receipt Date: 20230316
  Transmission Date: 20230417
  Serious: Yes (Hospitalization, Other)
  Sender: FDA-Public Use
  Company Number: CA-ELI_LILLY_AND_COMPANY-CA202303003334

PATIENT
  Age: 11 Year
  Sex: Male

DRUGS (32)
  1. FLUOXETINE HYDROCHLORIDE [Suspect]
     Active Substance: FLUOXETINE HYDROCHLORIDE
     Indication: Product used for unknown indication
     Dosage: 20 MG, DAILY
     Route: 048
  2. ARIPIPRAZOLE [Suspect]
     Active Substance: ARIPIPRAZOLE
     Indication: Product used for unknown indication
     Dosage: 20 MG, TID
     Route: 048
  3. BACLOFEN [Suspect]
     Active Substance: BACLOFEN
     Indication: Product used for unknown indication
     Dosage: 20 MG, TID
     Route: 048
  4. BISACODYL [Suspect]
     Active Substance: BISACODYL
     Indication: Product used for unknown indication
     Dosage: 5 MG, DAILY
     Route: 048
  5. CELECOXIB [Suspect]
     Active Substance: CELECOXIB
     Indication: Pain management
     Dosage: 2 DOSAGE FORM, DAILY
     Route: 048
  6. CLOBAZAM [Suspect]
     Active Substance: CLOBAZAM
     Indication: Back pain
     Dosage: 20 MG, BID
     Route: 048
  7. CLONIDINE [Suspect]
     Active Substance: CLONIDINE
     Indication: Product used for unknown indication
     Dosage: 0.1 MG, DAILY
     Route: 048
  8. CLONIDINE [Suspect]
     Active Substance: CLONIDINE
     Dosage: 0.05 MG, DAILY
     Route: 048
  9. DIMENHYDRINATE [Suspect]
     Active Substance: DIMENHYDRINATE
     Indication: Constipation
     Dosage: 25 MG, DAILY
     Route: 048
  10. DIPHENHYDRAMINE [Suspect]
     Active Substance: DIPHENHYDRAMINE
     Indication: Pruritus
     Dosage: 12.5 MG, EVERY 6 HRS
     Route: 048
  11. ELIGARD [Suspect]
     Active Substance: LEUPROLIDE ACETATE
     Indication: Product used for unknown indication
     Dosage: 7.5 MG, MONTHLY (1/M)
     Route: 030
  12. ACETAMINOPHEN\METHOCARBAMOL [Suspect]
     Active Substance: ACETAMINOPHEN\METHOCARBAMOL
     Indication: Product used for unknown indication
     Dosage: 400 MG, BID
     Route: 065
  13. FLUTICASONE [Suspect]
     Active Substance: FLUTICASONE
     Indication: Product used for unknown indication
     Dosage: 1 DOSAGE FORM, DAILY
     Route: 065
  14. GABAPENTIN [Suspect]
     Active Substance: GABAPENTIN
     Indication: Pain management
     Dosage: 2 DOSAGE FORM, DAILY
     Route: 048
  15. HYDROMORPHONE [Suspect]
     Active Substance: HYDROMORPHONE
     Indication: Pain management
     Dosage: UNK, UNKNOWN
     Route: 065
  16. HYDROXYCHLOROQUINE [Suspect]
     Active Substance: HYDROXYCHLOROQUINE
     Indication: Product used for unknown indication
     Dosage: 400 MG, DAILY
     Route: 048
  17. KETOROLAC [Suspect]
     Active Substance: KETOROLAC TROMETHAMINE
     Indication: Pain
     Dosage: UNK, UNKNOWN
     Route: 065
  18. LORAZEPAM [Suspect]
     Active Substance: LORAZEPAM
     Indication: Seizure
     Dosage: 0.5 MG, UNKNOWN
     Route: 060
  19. LORAZEPAM [Suspect]
     Active Substance: LORAZEPAM
     Indication: Pain management
     Dosage: UNK UNK, UNKNOWN
     Route: 065
  20. LORAZEPAM [Suspect]
     Active Substance: LORAZEPAM
     Indication: Muscle spasms
  21. POLYETHYLENE GLYCOLS [Suspect]
     Active Substance: POLYETHYLENE GLYCOLS
     Indication: Product used for unknown indication
     Dosage: 30 MG, BID
     Route: 048
  22. POLYETHYLENE GLYCOL 3350\POTASSIUM CHLORIDE\SODIUM BICARBONATE\SODIUM [Suspect]
     Active Substance: POLYETHYLENE GLYCOL 3350\POTASSIUM CHLORIDE\SODIUM BICARBONATE\SODIUM CHLORIDE
     Indication: Product used for unknown indication
     Dosage: 60 MG, DAILY
     Route: 048
  23. MELATONIN [Suspect]
     Active Substance: MELATONIN
     Indication: Sleep deficit
     Dosage: 10 MG, DAILY
     Route: 048
  24. METHADONE [Suspect]
     Active Substance: METHADONE HYDROCHLORIDE
     Indication: Back pain
     Dosage: 2 MG, TID
     Route: 048
  25. METHOCARBAMOL [Suspect]
     Active Substance: METHOCARBAMOL
     Indication: Product used for unknown indication
     Dosage: UNK, UNKNOWN
     Route: 048
  26. MONTELUKAST [Suspect]
     Active Substance: MONTELUKAST SODIUM
     Indication: Product used for unknown indication
     Dosage: 10 MG, DAILY
     Route: 048
  27. PANTOPRAZOLE [Suspect]
     Active Substance: PANTOPRAZOLE
     Indication: Product used for unknown indication
     Dosage: 40 MG, DAILY
     Route: 048
  28. PHENOBARBITAL [Suspect]
     Active Substance: PHENOBARBITAL
     Indication: Product used for unknown indication
     Dosage: 30 MG, BID
     Route: 048
  29. RANITIDINE [Suspect]
     Active Substance: RANITIDINE
     Indication: Product used for unknown indication
     Dosage: 150 MG, DAILY
     Route: 048
  30. ALBUTEROL [Suspect]
     Active Substance: ALBUTEROL
     Indication: Product used for unknown indication
     Dosage: 150 MG, EVERY 4 HRS
     Route: 048
  31. VITAMIN C [Suspect]
     Active Substance: ASCORBIC ACID
     Indication: Product used for unknown indication
     Dosage: 1500 MG, DAILY
     Route: 048
  32. VITAMIN D3 [Suspect]
     Active Substance: CHOLECALCIFEROL
     Indication: Product used for unknown indication
     Dosage: UNK, UNKNOWN
     Route: 065

REACTIONS (5)
  - Respiratory depression [Unknown]
  - Drug dependence [Unknown]
  - Drug abuse [Unknown]
  - Off label use [Unknown]
  - Drug ineffective [Unknown]
